FAERS Safety Report 18887638 (Version 1)
Quarter: 2021Q1

REPORT INFORMATION
  Report Type: Spontaneous
  Country: NL (occurrence: NL)
  Receive Date: 20210212
  Receipt Date: 20210212
  Transmission Date: 20210420
  Serious: Yes (Death)
  Sender: FDA-Public Use
  Company Number: NL-JNJFOC-A-CH2019-194387

PATIENT

DRUGS (1)
  1. UPTRAVI [Suspect]
     Active Substance: SELEXIPAG
     Indication: PULMONARY ARTERIAL HYPERTENSION
     Route: 048

REACTIONS (4)
  - Right ventricular failure [Fatal]
  - Gastrointestinal haemorrhage [Fatal]
  - Pulmonary arterial hypertension [Unknown]
  - Adverse event [Unknown]
